FAERS Safety Report 8669229 (Version 3)
Quarter: 2013Q1

REPORT INFORMATION
  Report Type: Report from Study
  Country: US (occurrence: US)
  Receive Date: 20120717
  Receipt Date: 20130114
  Transmission Date: 20140127
  Serious: Yes (Hospitalization, Disabling, Other)
  Sender: FDA-Public Use
  Company Number: US-ABBOTT-12P-163-0955808-00

PATIENT
  Age: 59 None
  Sex: Male
  Weight: 75.82 kg

DRUGS (14)
  1. HUMIRA [Suspect]
     Indication: CROHN^S DISEASE
     Dates: start: 201010, end: 201103
  2. HUMIRA [Suspect]
     Dosage: ONE DAY AFTER FIRST DOSE
     Dates: start: 201207, end: 201207
  3. HUMIRA [Suspect]
     Dosage: TWO WEEKS AFTER FIRST DOSE
     Dates: start: 2012, end: 2012
  4. HUMIRA [Suspect]
     Dosage: 4 WEEKS AFTER FIRST DOSE
     Dates: start: 2012
  5. HUMIRA [Suspect]
     Dates: start: 201009, end: 201103
  6. CIPRO [Suspect]
     Indication: ENTERITIS INFECTIOUS
     Dates: end: 2012
  7. ENTOCORT [Concomitant]
     Indication: PRODUCT USED FOR UNKNOWN INDICATION
     Dosage: DAILY DOSE 6 MG
  8. VITAMIN D [Concomitant]
     Indication: VITAMIN SUPPLEMENTATION
     Dosage: LARGE AMOUNTS
  9. VITAMIN A [Concomitant]
     Indication: VITAMIN SUPPLEMENTATION
     Dosage: LARGE AMOUNTS
  10. CALCIUM [Concomitant]
     Indication: MINERAL SUPPLEMENTATION
  11. FISH OIL [Concomitant]
     Indication: SUPPLEMENTATION THERAPY
  12. TESTOSTERONE VITAMINS [Concomitant]
     Indication: MUSCLE ATROPHY
  13. PROBIOTICS NOS [Concomitant]
     Indication: SUPPLEMENTATION THERAPY
  14. VITAMIN C [Concomitant]
     Indication: VITAMIN SUPPLEMENTATION
     Dosage: LARGE AMOUNTS

REACTIONS (28)
  - Calculus bladder [Not Recovered/Not Resolved]
  - Intestinal haemorrhage [Recovered/Resolved]
  - Gastrointestinal ulcer [Unknown]
  - Blood disorder [Unknown]
  - Fistula [Unknown]
  - Haemoglobin decreased [Recovered/Resolved]
  - Loss of consciousness [Recovered/Resolved]
  - Crohn^s disease [Not Recovered/Not Resolved]
  - Infection [Recovered/Resolved]
  - Abscess [Unknown]
  - Diarrhoea [Recovered/Resolved]
  - Drug dose omission [Unknown]
  - Crohn^s disease [Unknown]
  - Dizziness [Unknown]
  - Dizziness [Unknown]
  - Dizziness [Recovering/Resolving]
  - Local swelling [Unknown]
  - Cholelithiasis [Unknown]
  - Blood iron decreased [Not Recovered/Not Resolved]
  - Weight decreased [Not Recovered/Not Resolved]
  - Muscle atrophy [Not Recovered/Not Resolved]
  - Joint swelling [Unknown]
  - Local swelling [Unknown]
  - Cardiac disorder [Recovered/Resolved]
  - Abdominal discomfort [Not Recovered/Not Resolved]
  - Enteritis infectious [Recovered/Resolved]
  - Skin exfoliation [Recovered/Resolved]
  - Dehydration [Recovered/Resolved]
